FAERS Safety Report 17846646 (Version 1)
Quarter: 2020Q2

REPORT INFORMATION
  Report Type: Spontaneous
  Country: NL (occurrence: NL)
  Receive Date: 20200601
  Receipt Date: 20200601
  Transmission Date: 20200714
  Serious: Yes (Other)
  Sender: FDA-Public Use
  Company Number: NL-MYLANLABS-2020M1052432

PATIENT
  Age: 64 Year
  Sex: Male

DRUGS (3)
  1. CHLOROQUINE. [Suspect]
     Active Substance: CHLOROQUINE
     Indication: CORONAVIRUS INFECTION
     Dosage: OPLAADDOSERING VAN 600 MG OP 23-03
     Dates: start: 20200323
  2. FENTANYL. [Suspect]
     Active Substance: FENTANYL
     Indication: PRODUCT USED FOR UNKNOWN INDICATION
     Dosage: UNK
     Dates: start: 20200322
  3. CHLOROQUINE. [Suspect]
     Active Substance: CHLOROQUINE
     Dosage: DAARNA 2DD 300 MG VAN 24-03 T/M 28-03.
     Dates: start: 20200324, end: 20200328

REACTIONS (1)
  - Impaired gastric emptying [Recovered/Resolved]

NARRATIVE: CASE EVENT DATE: 20200325
